FAERS Safety Report 9999582 (Version 1)
Quarter: 2014Q1

REPORT INFORMATION
  Report Type: Report from Study
  Country: ES (occurrence: ES)
  Receive Date: 20140312
  Receipt Date: 20140312
  Transmission Date: 20141002
  Serious: Yes (Death, Other)
  Sender: FDA-Public Use
  Company Number: ES-BAYER-2014-033625

PATIENT
  Age: 93 Year
  Sex: Male

DRUGS (1)
  1. ADIRO 300 GASTRO-RESISTANT TABLETS, 30 TABLETS [Suspect]
     Dosage: 300 MG, QD
     Route: 065
     Dates: start: 2014, end: 20140210

REACTIONS (1)
  - Cerebral haematoma [Fatal]
